FAERS Safety Report 7944505 (Version 7)
Quarter: 2015Q1

REPORT INFORMATION
  Report Type: Spontaneous
  Country: US (occurrence: US)
  Receive Date: 20110513
  Receipt Date: 20150126
  Transmission Date: 20150721
  Serious: Yes (Hospitalization, Other)
  Sender: FDA-Public Use
  Company Number: US-BAYER-2011-040663

PATIENT
  Age: 49 Year
  Sex: Female
  Weight: 66 kg

DRUGS (9)
  1. PROTONIX [Concomitant]
     Active Substance: PANTOPRAZOLE SODIUM
  2. ZOCOR [Concomitant]
     Active Substance: SIMVASTATIN
  3. CODEINE [Concomitant]
     Active Substance: CODEINE
  4. YASMIN [Suspect]
     Active Substance: DROSPIRENONE\ETHINYL ESTRADIOL
     Indication: CONTRACEPTION
     Dosage: UNK
     Route: 048
     Dates: start: 200409, end: 200511
  5. REGLAN [Concomitant]
     Active Substance: METOCLOPRAMIDE HYDROCHLORIDE
  6. PROZAC [Concomitant]
     Active Substance: FLUOXETINE HYDROCHLORIDE
     Dosage: 40 MG, UNK
  7. RANITIDINE [Concomitant]
     Active Substance: RANITIDINE\RANITIDINE HYDROCHLORIDE
     Dosage: 150 MG, UNK
     Route: 048
  8. ZOLOFT [Concomitant]
     Active Substance: SERTRALINE HYDROCHLORIDE
     Dosage: 100 MG, BID
  9. AMBIEN [Concomitant]
     Active Substance: ZOLPIDEM TARTRATE

REACTIONS (12)
  - Cerebrovascular accident [Recovering/Resolving]
  - Mental disorder [None]
  - Emotional distress [None]
  - Fall [None]
  - Anxiety [None]
  - General physical health deterioration [None]
  - Balance disorder [None]
  - Injury [None]
  - Hemiparesis [Recovering/Resolving]
  - Depression [None]
  - Hip fracture [Recovered/Resolved]
  - Pain [None]

NARRATIVE: CASE EVENT DATE: 200510
